FAERS Safety Report 24820577 (Version 1)
Quarter: 2025Q1

REPORT INFORMATION
  Report Type: Spontaneous
  Country: US (occurrence: None)
  Receive Date: 20250108
  Receipt Date: 20250108
  Transmission Date: 20250409
  Serious: Yes (Hospitalization)
  Sender: FDA-CTU
  Company Number: None

PATIENT
  Age: 41 Year
  Sex: Female

DRUGS (1)
  1. NUCALA [Suspect]
     Active Substance: MEPOLIZUMAB
     Indication: Asthma
     Route: 058
     Dates: start: 202410

REACTIONS (5)
  - Dyspnoea [None]
  - Cough [None]
  - Wheezing [None]
  - Chest discomfort [None]
  - Condition aggravated [None]

NARRATIVE: CASE EVENT DATE: 20241212
